FAERS Safety Report 24443641 (Version 2)
Quarter: 2024Q4

REPORT INFORMATION
  Report Type: Report from Study
  Country: US (occurrence: US)
  Receive Date: 20241016
  Receipt Date: 20241017
  Transmission Date: 20250115
  Serious: No
  Sender: ROCHE
  Company Number: US-ROCHE-2133373

PATIENT
  Age: 63 Year
  Sex: Female
  Weight: 105.23 kg

DRUGS (16)
  1. RITUXAN [Suspect]
     Active Substance: RITUXIMAB
     Indication: Rheumatoid arthritis
     Dosage: NEXT DOSE IN AUG/2018?MOST RECENT TREATMENT GIVEN ON 29/JAN/2018, 12/FEB/2018, 17/AUG/2018, 31/AUG/2
     Route: 042
     Dates: start: 201202
  2. RITUXAN [Suspect]
     Active Substance: RITUXIMAB
     Indication: Felty^s syndrome
  3. RITUXAN [Suspect]
     Active Substance: RITUXIMAB
     Indication: Anaemia of chronic disease
  4. RITUXAN [Suspect]
     Active Substance: RITUXIMAB
     Indication: Iron deficiency anaemia
  5. RITUXAN [Suspect]
     Active Substance: RITUXIMAB
     Indication: Neutropenia
  6. RITUXAN [Suspect]
     Active Substance: RITUXIMAB
     Indication: Leukopenia
  7. NEUPOGEN [Concomitant]
     Active Substance: FILGRASTIM
  8. GLIPIZIDE [Concomitant]
     Active Substance: GLIPIZIDE
     Route: 048
  9. HYDROXYCHLOROQUINE [Concomitant]
     Active Substance: HYDROXYCHLOROQUINE
     Route: 048
  10. METFORMIN [Concomitant]
     Active Substance: METFORMIN HYDROCHLORIDE
     Route: 048
  11. ACETAMINOPHEN [Concomitant]
     Active Substance: ACETAMINOPHEN
     Route: 048
  12. DIPHENHYDRAMINE [Concomitant]
     Active Substance: DIPHENHYDRAMINE
     Route: 042
  13. METHYLPREDNISOLONE [Concomitant]
     Active Substance: METHYLPREDNISOLONE
     Dosage: FREQUENCY TEXT:AS NEEDED
     Route: 042
  14. EPINEPHRINE [Concomitant]
     Active Substance: EPINEPHRINE
     Dosage: INTRAMUSCULARLY? FREQUENCY TEXT:ONCE
  15. FAMOTIDINE [Concomitant]
     Active Substance: FAMOTIDINE
     Dosage: FREQUENCY TEXT:AS NEEDED
     Route: 042
  16. HYDROCORTISONE [Concomitant]
     Active Substance: HYDROCORTISONE
     Dosage: FREQUENCY TEXT:AS NEEDED
     Route: 042

REACTIONS (6)
  - Arthralgia [Unknown]
  - Synovitis [Unknown]
  - Joint swelling [Unknown]
  - Musculoskeletal stiffness [Unknown]
  - Swelling [Unknown]
  - Influenza [Unknown]

NARRATIVE: CASE EVENT DATE: 20180501
